FAERS Safety Report 15230169 (Version 1)
Quarter: 2018Q3

REPORT INFORMATION
  Report Type: Spontaneous
  Country: US (occurrence: US)
  Receive Date: 20180802
  Receipt Date: 20180802
  Transmission Date: 20181010
  Serious: Yes (Other)
  Sender: FDA-Public Use
  Company Number: US-ACCORD-066858

PATIENT
  Age: 62 Year
  Sex: Female
  Weight: 76.2 kg

DRUGS (16)
  1. CYTOXAN [Suspect]
     Active Substance: CYCLOPHOSPHAMIDE
     Indication: BREAST CANCER
  2. LASIX [Concomitant]
     Active Substance: FUROSEMIDE
     Dates: start: 20161227
  3. MOBIC [Concomitant]
     Active Substance: MELOXICAM
     Dates: start: 20130619
  4. INDERAL LA [Concomitant]
     Active Substance: PROPRANOLOL HYDROCHLORIDE
     Dates: start: 20130507
  5. FLUTICASONE. [Concomitant]
     Active Substance: FLUTICASONE
     Dates: start: 20160318
  6. AMITRIPTYLINE [Concomitant]
     Active Substance: AMITRIPTYLINE
     Dates: start: 20130507
  7. AMARYL [Concomitant]
     Active Substance: GLIMEPIRIDE
     Dates: start: 20160527
  8. METFORMIN [Concomitant]
     Active Substance: METFORMIN HYDROCHLORIDE
     Dates: start: 20151005
  9. ZOCOR [Concomitant]
     Active Substance: SIMVASTATIN
     Dates: start: 20130507
  10. FENOFIBRATE. [Concomitant]
     Active Substance: FENOFIBRATE
     Dates: start: 20130507
  11. NEXIUM [Concomitant]
     Active Substance: ESOMEPRAZOLE MAGNESIUM
     Dates: start: 20170123
  12. AMLODIPINE [Concomitant]
     Active Substance: AMLODIPINE BESYLATE
     Dates: start: 20140509
  13. LISINOPRIL. [Concomitant]
     Active Substance: LISINOPRIL
     Dates: start: 20131105
  14. PAXIL [Concomitant]
     Active Substance: PAROXETINE HYDROCHLORIDE
     Dates: start: 20130507
  15. DOCETAXEL ACCORD [Suspect]
     Active Substance: DOCETAXEL
     Indication: BREAST CANCER
     Dates: start: 20150410, end: 20150618
  16. CHONDROITIN SULFATE/GLUCOSAMINE [Concomitant]
     Dates: start: 20170531

REACTIONS (1)
  - Alopecia [Not Recovered/Not Resolved]

NARRATIVE: CASE EVENT DATE: 201504
